FAERS Safety Report 9561785 (Version 1)
Quarter: 2013Q3

REPORT INFORMATION
  Report Type: Spontaneous
  Country: CA (occurrence: CA)
  Receive Date: 20130927
  Receipt Date: 20130927
  Transmission Date: 20140515
  Serious: Yes (Other)
  Sender: FDA-Public Use
  Company Number: CA-TEVA-434538USA

PATIENT
  Age: 75 Year
  Sex: Male

DRUGS (3)
  1. CARBOPLATIN [Suspect]
     Indication: NON-SMALL CELL LUNG CANCER STAGE III
     Route: 065
  2. GEMCITABINE [Suspect]
     Route: 065
  3. PACLITAXEL [Suspect]
     Route: 065

REACTIONS (2)
  - Cognitive disorder [Recovered/Resolved]
  - Adverse event [Unknown]
